FAERS Safety Report 9546920 (Version 3)
Quarter: 2015Q3

REPORT INFORMATION
  Report Type: Spontaneous
  Country: US (occurrence: None)
  Receive Date: 20130606
  Receipt Date: 20150716
  Transmission Date: 20151125
  Serious: Yes (Death)
  Sender: FDA-Public Use
  Company Number: 2013SIPUSA00016

PATIENT
  Age: 76 Year
  Sex: Male

DRUGS (25)
  1. ECHINACEA PURPUREA [Concomitant]
     Active Substance: ECHINACEA PURPUREA
  2. OLEA EUROPAEA LEAF EXTRACT (OLEA EUROPAEA LEAF EXTRACT) [Concomitant]
  3. ZOLADEX(GOSERELIN ACETATE) [Concomitant]
  4. FUROSEMIDE(FUROSEMIDE) [Concomitant]
  5. PROCHLORPERAZINE(PROCHLORPERAZINE MALEATE) [Concomitant]
  6. SIPULEUCEL-T [Suspect]
     Active Substance: SIPULEUCEL-T
     Indication: PROSTATE CANCER METASTATIC
     Route: 042
     Dates: start: 20120730, end: 20120730
  7. VITAMIN D3(COLECALCIFEROL) [Concomitant]
  8. SPIRULINA(SPIRULINA) [Concomitant]
  9. PREDNISONE(PREDNISONE) [Concomitant]
  10. CO Q10(UBIDECARENONE) [Concomitant]
  11. ADVIL [Concomitant]
     Active Substance: IBUPROFEN
  12. HYDROMORPHONE(HYDROMORPHONE) [Concomitant]
  13. CITRATE OF MAGNESIUM [Concomitant]
     Active Substance: MAGNESIUM CITRATE
  14. LACTULOSE(LACTULOSE) [Concomitant]
  15. ABIRATERON(ABIRATERONE ACETATE) [Concomitant]
  16. CHLOROPHYLL(CHLOROPHYLL) [Concomitant]
  17. FENTANYL(FENTANYL CITRATE) [Concomitant]
  18. ZINC(ZINC) [Concomitant]
  19. VITAMIN C(ASCORBIC ACID) [Concomitant]
  20. VITAMIN B COMPLEX(CYANOCOBALAMIN, NICOTINAMIDE, PYRIDONXINE HYDROCHLORIDE, RIBOFLAVIN, THIAMINE HYDROCHORIDE) [Concomitant]
  21. CYCLOBENZAPRIN HCL (CYCLOBENZAPRINE HYDROCHLORIDE) [Concomitant]
  22. SELENIUM(SELENIUM) [Concomitant]
  23. IODINE(IODINE, SODIUM IODINE) [Concomitant]
  24. OXYCODONE/ACETAMINOPHEN(OXYCODONE HYDROCHLORIDE, PARACETAMOL) [Concomitant]
  25. POTASSIUM CHLORIDE(POTASSIUM CHLORIDE) [Concomitant]

REACTIONS (2)
  - Disease progression [None]
  - Prostate cancer metastatic [None]

NARRATIVE: CASE EVENT DATE: 20130102
